FAERS Safety Report 10208455 (Version 1)
Quarter: 2014Q2

REPORT INFORMATION
  Report Type: Spontaneous
  Country: US (occurrence: US)
  Receive Date: 20140530
  Receipt Date: 20140530
  Transmission Date: 20141212
  Serious: No
  Sender: FDA-Public Use
  Company Number: US-PFIZER INC-2014147321

PATIENT
  Age: 75 Year
  Sex: Female

DRUGS (16)
  1. NEURONTIN [Suspect]
     Dosage: UNK
  2. CELEBREX [Suspect]
     Dosage: UNK
  3. EFFEXOR [Suspect]
     Dosage: UNK
  4. AMOXICILLIN [Suspect]
     Dosage: UNK
  5. LODINE [Suspect]
     Dosage: UNK
  6. INDOCIN [Suspect]
     Dosage: UNK
  7. CYMBALTA [Suspect]
     Dosage: UNK
  8. HYDROXYCHLOROQUINE [Suspect]
     Dosage: UNK
  9. WELLBUTRIN [Suspect]
     Dosage: UNK
  10. THORAZINE [Suspect]
     Dosage: UNK
  11. LEXAPRO [Suspect]
     Dosage: UNK
  12. VIOXX [Suspect]
     Dosage: UNK
  13. ABILIFY [Suspect]
     Dosage: UNK
  14. ALLOPURINOL [Suspect]
     Dosage: UNK
  15. FLEXERIL [Suspect]
     Dosage: UNK
  16. CLONAZEPAM [Suspect]
     Dosage: UNK

REACTIONS (1)
  - Drug hypersensitivity [Unknown]
